FAERS Safety Report 7957011-9 (Version None)
Quarter: 2011Q4

REPORT INFORMATION
  Report Type: 
  Country: None (occurrence: None)
  Receive Date: 20111205
  Receipt Date: 20111205
  Transmission Date: 20120403
  Serious: No
  Sender: FDA-Public Use
  Company Number: None

PATIENT
  Sex: Female
  Weight: 70.306 kg

DRUGS (1)
  1. LEVAQUIN [Suspect]
     Indication: DIVERTICULITIS
     Dosage: ONE TABLET
     Route: 048
     Dates: start: 20111102, end: 20111122

REACTIONS (3)
  - ARTHRALGIA [None]
  - INSOMNIA [None]
  - MOVEMENT DISORDER [None]
